FAERS Safety Report 5910542-5 (Version None)
Quarter: 2008Q4

REPORT INFORMATION
  Report Type: 
  Country: None (occurrence: None)
  Receive Date: 20081007
  Receipt Date: 20080305
  Transmission Date: 20090506
  Serious: No
  Sender: FDA-Public Use
  Company Number: US-ASTRAZENECA-2008UW04487

PATIENT
  Age: 802 Month
  Sex: Female
  Weight: 73.5 kg

DRUGS (6)
  1. ARIMIDEX [Suspect]
     Indication: BREAST CANCER STAGE I
     Route: 048
     Dates: start: 20071201
  2. PRAVACHOL [Concomitant]
  3. FLUOXETINE [Concomitant]
  4. BUPROPION HCL [Concomitant]
  5. HYDROCHLOROTHIAZIDE [Concomitant]
  6. MECLIZINE [Concomitant]

REACTIONS (8)
  - ARTHRALGIA [None]
  - CHEST DISCOMFORT [None]
  - DISTURBANCE IN ATTENTION [None]
  - FATIGUE [None]
  - HEADACHE [None]
  - NAUSEA [None]
  - PRURITUS [None]
  - VISUAL IMPAIRMENT [None]
